FAERS Safety Report 16867946 (Version 2)
Quarter: 2019Q4

REPORT INFORMATION
  Report Type: Report from Study
  Country: RU (occurrence: RU)
  Receive Date: 20190930
  Receipt Date: 20191010
  Transmission Date: 20200122
  Serious: Yes (Other)
  Sender: FDA-Public Use
  Company Number: RU-EMD SERONO-9119440

PATIENT
  Age: 39 Year
  Sex: Female

DRUGS (2)
  1. PERGOVERIS [Suspect]
     Active Substance: FOLLITROPIN\LUTROPIN ALFA
     Indication: ASSISTED REPRODUCTIVE TECHNOLOGY
     Dates: start: 20160629, end: 20160701
  2. GONAL-F [Suspect]
     Active Substance: FOLLITROPIN
     Indication: ASSISTED REPRODUCTIVE TECHNOLOGY
     Route: 058
     Dates: start: 20160624, end: 20160628

REACTIONS (1)
  - Abortion missed [Recovered/Resolved]

NARRATIVE: CASE EVENT DATE: 20161104
